FAERS Safety Report 7005428-1 (Version None)
Quarter: 2010Q3

REPORT INFORMATION
  Report Type: 
  Country: None (occurrence: None)
  Receive Date: 20100921
  Receipt Date: 20100910
  Transmission Date: 20110219
  Serious: Yes (Other)
  Sender: FDA-Public Use
  Company Number: CA-ROCHE-722658

PATIENT
  Sex: Female
  Weight: 51 kg

DRUGS (5)
  1. BEVACIZUMAB [Suspect]
     Indication: OLIGODENDROGLIOMA
     Route: 042
     Dates: start: 20100419
  2. TEGRETOL [Concomitant]
  3. CLONAZEPAM [Concomitant]
  4. PANTOLOC [Concomitant]
  5. TEMODAL [Concomitant]

REACTIONS (2)
  - CONSTIPATION [None]
  - NEOPLASM RECURRENCE [None]
